FAERS Safety Report 4852548-3 (Version None)
Quarter: 2005Q4

REPORT INFORMATION
  Report Type: 
  Country: None (occurrence: None)
  Receive Date: 20051213
  Receipt Date: 20051117
  Transmission Date: 20060501
  Serious: Yes (Hospitalization, Disabling)
  Sender: FDA-Public Use
  Company Number: PHFR2005GB03798

PATIENT
  Age: 47 Year
  Sex: Male

DRUGS (6)
  1. TEGRETOL [Suspect]
     Indication: BIPOLAR DISORDER
     Dosage: 200 MG, BID
     Route: 048
  2. LACTULOSE [Concomitant]
     Indication: CONSTIPATION
     Dosage: 15 ML, BID
     Route: 048
     Dates: end: 20051101
  3. OLANZAPINE [Concomitant]
     Indication: BIPOLAR DISORDER
     Dosage: 10 MG, BID
     Route: 048
     Dates: end: 20051101
  4. SENNA [Concomitant]
     Indication: CONSTIPATION
     Dosage: 1-2 TABLETS NOCTE
     Route: 048
     Dates: end: 20051101
  5. ASPIRIN [Concomitant]
     Dosage: 75MG/DAY
     Route: 048
     Dates: end: 20051101
  6. CLOMETHIAZOLE [Concomitant]
     Indication: SEDATION
     Dosage: 192MG/NOCTE
     Route: 048
     Dates: end: 20051101

REACTIONS (1)
  - FEMORAL NECK FRACTURE [None]
